FAERS Safety Report 7217491-3 (Version None)
Quarter: 2011Q1

REPORT INFORMATION
  Report Type: 
  Country: None (occurrence: None)
  Receive Date: 20110110
  Receipt Date: 20101231
  Transmission Date: 20110831
  Serious: Yes (Death)
  Sender: FDA-Public Use
  Company Number: US-PFIZER INC-2011002383

PATIENT
  Age: 32 Year
  Sex: Male

DRUGS (5)
  1. DESOGESTREL AND ETHINYL ESTRADIOL [Suspect]
  2. CYCLOBENZAPRINE [Suspect]
  3. ALPRAZOLAM [Suspect]
  4. ESCITALOPRAM OXALATE [Suspect]
  5. ZOLPIDEM [Suspect]

REACTIONS (1)
  - DEATH [None]
